FAERS Safety Report 14616624 (Version 4)
Quarter: 2018Q2

REPORT INFORMATION
  Report Type: Report from Study
  Country: US (occurrence: US)
  Receive Date: 20180309
  Receipt Date: 20180425
  Transmission Date: 20180711
  Serious: Yes (Life-Threatening, Hospitalization, Other)
  Sender: FDA-Public Use
  Company Number: PHEH2018US009133

PATIENT
  Age: 58 Year
  Sex: Male
  Weight: 84.5 kg

DRUGS (9)
  1. TASIGNA [Suspect]
     Active Substance: NILOTINIB
     Dosage: 200 MG, UNK
     Route: 048
     Dates: end: 20180218
  2. TASIGNA [Suspect]
     Active Substance: NILOTINIB
     Dosage: 300 MG, BID
     Route: 048
  3. TASIGNA [Suspect]
     Active Substance: NILOTINIB
     Dosage: 300 MG, QD
     Route: 048
  4. PRAVASTATIN SODIUM. [Concomitant]
     Active Substance: PRAVASTATIN SODIUM
     Indication: BLOOD CHOLESTEROL INCREASED
     Dosage: 20 MG, QD
     Route: 048
     Dates: start: 20180218
  5. ASPIRIN. [Concomitant]
     Active Substance: ASPIRIN
     Indication: PRODUCT USED FOR UNKNOWN INDICATION
     Dosage: 325 MG, QD
     Route: 048
  6. LISINOPRIL. [Concomitant]
     Active Substance: LISINOPRIL
     Indication: BLOOD PRESSURE INCREASED
     Dosage: UNK
     Route: 048
  7. TASIGNA [Suspect]
     Active Substance: NILOTINIB
     Indication: CHRONIC MYELOID LEUKAEMIA
     Dosage: 400 MG, QD
     Route: 048
  8. GABAPENTIN. [Concomitant]
     Active Substance: GABAPENTIN
     Indication: PRODUCT USED FOR UNKNOWN INDICATION
     Dosage: 100 MG, UNK
     Route: 048
  9. PLAVIX [Concomitant]
     Active Substance: CLOPIDOGREL BISULFATE
     Indication: PRODUCT USED FOR UNKNOWN INDICATION
     Dosage: 75 MG, QD
     Route: 048
     Dates: start: 20180218

REACTIONS (20)
  - Blood pressure increased [Unknown]
  - Dizziness [Unknown]
  - Blood bilirubin increased [Unknown]
  - Cerebrovascular accident [Unknown]
  - Aphasia [Unknown]
  - Speech disorder [Unknown]
  - Vomiting [Unknown]
  - Dysstasia [Unknown]
  - Hepatic enzyme increased [Unknown]
  - Asthenia [Unknown]
  - Cerebellar infarction [Unknown]
  - Nausea [Unknown]
  - Balance disorder [Unknown]
  - Sensory disturbance [Unknown]
  - Gait disturbance [Recovered/Resolved]
  - Motor dysfunction [Unknown]
  - Cerebrovascular accident [Recovered/Resolved]
  - Vertigo [Recovered/Resolved]
  - Headache [Unknown]
  - Vision blurred [Unknown]

NARRATIVE: CASE EVENT DATE: 20180218
